FAERS Safety Report 7015413-1 (Version None)
Quarter: 2010Q3

REPORT INFORMATION
  Report Type: 
  Country: None (occurrence: None)
  Receive Date: 20100927
  Receipt Date: 20100920
  Transmission Date: 20110219
  Serious: Yes (Other)
  Sender: FDA-Public Use
  Company Number: PHHY2010AR62443

PATIENT
  Age: 70 Year
  Sex: Female

DRUGS (6)
  1. EXELON [Suspect]
     Indication: COGNITIVE DISORDER
     Dosage: 5 MG, UNK
     Route: 062
  2. ACETYLSALICYLIC ACID [Concomitant]
  3. ATORVASTATIN CALCIUM [Concomitant]
     Dosage: 10 MG, UNK
  4. LOSARTAN POTASSIUM [Concomitant]
     Dosage: 50 MG, UNK
  5. AMLODIPINE [Concomitant]
     Dosage: 5 MG, UNK
  6. LAMOTRIGINE [Concomitant]
     Dosage: 50 MG, UNK

REACTIONS (2)
  - DIZZINESS POSTURAL [None]
  - VESTIBULAR DISORDER [None]
